FAERS Safety Report 6146275-2 (Version None)
Quarter: 2009Q2

REPORT INFORMATION
  Report Type: 
  Country: None (occurrence: None)
  Receive Date: 20090407
  Receipt Date: 20090327
  Transmission Date: 20091009
  Serious: Yes (Hospitalization, Other)
  Sender: FDA-Public Use
  Company Number: US-JNJFOC-20090400064

PATIENT
  Sex: Female
  Weight: 43.09 kg

DRUGS (3)
  1. REMICADE [Suspect]
     Route: 042
  2. REMICADE [Suspect]
     Route: 042
  3. REMICADE [Suspect]
     Indication: CROHN'S DISEASE
     Route: 042

REACTIONS (5)
  - EATING DISORDER [None]
  - FEEDING TUBE COMPLICATION [None]
  - HYPERCHLORHYDRIA [None]
  - STRESS [None]
  - WEIGHT DECREASED [None]
